FAERS Safety Report 7152709-7 (Version None)
Quarter: 2010Q4

REPORT INFORMATION
  Report Type: 
  Country: None (occurrence: None)
  Receive Date: 20101213
  Receipt Date: 20101209
  Transmission Date: 20110411
  Serious: Yes (Other)
  Sender: FDA-Public Use
  Company Number: DK-BRISTOL-MYERS SQUIBB COMPANY-15433980

PATIENT
  Sex: Female

DRUGS (2)
  1. ABILIFY [Suspect]
  2. ANTIDEPRESSANT [Suspect]

REACTIONS (1)
  - MANIA [None]
